FAERS Safety Report 11382277 (Version 1)
Quarter: 2015Q3

REPORT INFORMATION
  Report Type: Spontaneous
  Country: US (occurrence: US)
  Receive Date: 20150811
  Receipt Date: 20150811
  Transmission Date: 20151125
  Serious: No
  Sender: FDA-Public Use
  Company Number: US-ELI_LILLY_AND_COMPANY-US201004003326

PATIENT
  Age: 72 Year
  Sex: Male

DRUGS (4)
  1. AMLODIPINE [Concomitant]
     Active Substance: AMLODIPINE BESYLATE
  2. CIALIS [Suspect]
     Active Substance: TADALAFIL
     Indication: ERECTILE DYSFUNCTION
     Dosage: 20 MG, DAILY (1/D)
     Dates: start: 20100328
  3. LEVITRA [Concomitant]
     Active Substance: VARDENAFIL HYDROCHLORIDE TRIHYDRATE
  4. CIALIS [Suspect]
     Active Substance: TADALAFIL
     Dosage: 5 MG, DAILY (1/D)

REACTIONS (3)
  - Drug dispensing error [Unknown]
  - Drug ineffective [Unknown]
  - Incorrect dose administered [Unknown]
